FAERS Safety Report 19719014 (Version 1)
Quarter: 2021Q3

REPORT INFORMATION
  Report Type: Spontaneous
  Country: US (occurrence: US)
  Receive Date: 20210818
  Receipt Date: 20210818
  Transmission Date: 20211014
  Serious: Yes (Death)
  Sender: FDA-Public Use
  Company Number: None

PATIENT
  Age: 52 Year
  Sex: Female

DRUGS (14)
  1. OXALIPLATIN. [Concomitant]
     Active Substance: OXALIPLATIN
  2. CYTOMEL [Concomitant]
     Active Substance: LIOTHYRONINE SODIUM
  3. WELLBUTRIN XL [Concomitant]
     Active Substance: BUPROPION HYDROCHLORIDE
  4. NEULASTA ONPRO 6MG [Concomitant]
  5. NEXIUM [Concomitant]
     Active Substance: ESOMEPRAZOLE MAGNESIUM
  6. VITAMIN D3 1000IU [Concomitant]
  7. PROZAC [Concomitant]
     Active Substance: FLUOXETINE HYDROCHLORIDE
  8. SYNTHROID [Concomitant]
     Active Substance: LEVOTHYROXINE SODIUM
  9. PREGABALIN 300MG [Concomitant]
     Active Substance: PREGABALIN
  10. PROAIR HFA [Concomitant]
     Active Substance: ALBUTEROL SULFATE
  11. ATENOLOL 25MG [Concomitant]
     Active Substance: ATENOLOL
  12. XGEVA [Concomitant]
     Active Substance: DENOSUMAB
  13. ARANESP [Suspect]
     Active Substance: DARBEPOETIN ALFA
     Indication: PRODUCT USED FOR UNKNOWN INDICATION
     Dosage: OTHER FREQUENCY:OTHER;?
     Route: 058
     Dates: start: 20210223
  14. ARMODAFINIL 250MG [Concomitant]
     Active Substance: ARMODAFINIL

REACTIONS (1)
  - Death [None]

NARRATIVE: CASE EVENT DATE: 20210817
